FAERS Safety Report 9009958 (Version 1)
Quarter: 2013Q1

REPORT INFORMATION
  Report Type: Spontaneous
  Country: US (occurrence: US)
  Receive Date: 20130110
  Receipt Date: 20130110
  Transmission Date: 20140127
  Serious: No
  Sender: FDA-Public Use
  Company Number: US-009507513-1301USA004441

PATIENT
  Sex: Male

DRUGS (3)
  1. CLARITIN-D 24 HOUR [Suspect]
     Indication: RESPIRATORY TRACT CONGESTION
     Dosage: UNK, UNKNOWN
     Route: 048
  2. CLARITIN-D 24 HOUR [Suspect]
     Indication: HEADACHE
  3. CLARITIN-D 24 HOUR [Suspect]
     Indication: MALAISE

REACTIONS (1)
  - Drug effect delayed [Unknown]
